FAERS Safety Report 10558473 (Version 1)
Quarter: 2014Q4

REPORT INFORMATION
  Report Type: Spontaneous
  Country: US (occurrence: US)
  Receive Date: 20141031
  Receipt Date: 20141031
  Transmission Date: 20150529
  Serious: Yes (Hospitalization)
  Sender: FDA-Public Use
  Company Number: US-FRI-1000071824

PATIENT
  Sex: Female

DRUGS (4)
  1. LORATADINE. [Suspect]
     Active Substance: LORATADINE
     Indication: HYPERSENSITIVITY
     Dosage: 10 MG
  2. CLEANING PILL (UNKNOWN DRUG) [Suspect]
     Active Substance: UNSPECIFIED INGREDIENT
  3. ATIVAN [Suspect]
     Active Substance: LORAZEPAM
  4. CELEXA [Suspect]
     Active Substance: CITALOPRAM HYDROBROMIDE
     Dates: start: 20140906, end: 20140908

REACTIONS (4)
  - Swollen tongue [Unknown]
  - Dyspnoea [Unknown]
  - Urinary tract infection [Unknown]
  - Confusional state [Unknown]

NARRATIVE: CASE EVENT DATE: 20140909
